FAERS Safety Report 9293214 (Version 4)
Quarter: 2013Q3

REPORT INFORMATION
  Report Type: Spontaneous
  Country: US (occurrence: US)
  Receive Date: 20130516
  Receipt Date: 20130701
  Transmission Date: 20140515
  Serious: Yes (Hospitalization, Other)
  Sender: FDA-Public Use
  Company Number: US-BAXTER-2013BAX017859

PATIENT
  Age: 42 Year
  Sex: Female

DRUGS (2)
  1. DIANEAL PD2 [Suspect]
     Indication: PERITONEAL DIALYSIS
     Route: 033
  2. DIANEAL PD2 [Suspect]
     Indication: PERITONEAL DIALYSIS
     Route: 033

REACTIONS (6)
  - Renal failure [Unknown]
  - Impaired gastric emptying [Recovering/Resolving]
  - Fluid overload [Unknown]
  - Peritonitis bacterial [Recovered/Resolved]
  - Peritoneal dialysis complication [Recovered/Resolved]
  - Malaise [Unknown]
